FAERS Safety Report 7451943-6 (Version None)
Quarter: 2011Q2

REPORT INFORMATION
  Report Type: 
  Country: None (occurrence: None)
  Receive Date: 20110502
  Receipt Date: 20090120
  Transmission Date: 20111010
  Serious: Yes (Other)
  Sender: FDA-Public Use
  Company Number: PHHY2009AT67117

PATIENT
  Sex: Female
  Weight: 88 kg

DRUGS (4)
  1. EUTHYROX [Concomitant]
     Dosage: 50 UG, UNK
  2. NEXIUM [Concomitant]
     Dosage: 20 MG, UNK
  3. TENORMIN [Concomitant]
     Dosage: 50 MG, UNK
  4. AZITHROMYCIN HEXAL [Suspect]
     Indication: BRONCHITIS
     Dosage: 2 DF
     Route: 048
     Dates: start: 20090115, end: 20090116

REACTIONS (2)
  - ACCIDENTAL OVERDOSE [None]
  - PELVIC PAIN [None]
